FAERS Safety Report 5851853-1 (Version None)
Quarter: 2008Q3

REPORT INFORMATION
  Report Type: 
  Country: None (occurrence: None)
  Receive Date: 20080819
  Receipt Date: 20080804
  Transmission Date: 20090109
  Serious: Yes (Other)
  Sender: FDA-Public Use
  Company Number: 2008S1013881

PATIENT
  Age: 70 Year
  Sex: Female
  Weight: 66 kg

DRUGS (2)
  1. METODURA 50 (METOPROLOL) [Suspect]
     Indication: INTENTIONAL OVERDOSE
     Dosage: 750 MG; ORAL
     Route: 048
     Dates: start: 20080801, end: 20080801
  2. ALLOPURINOL [Suspect]
     Indication: INTENTIONAL OVERDOSE
     Dosage: 7500 MG; ORAL
     Route: 048
     Dates: start: 20080801, end: 20080801

REACTIONS (3)
  - HYPERTENSION [None]
  - MULTIPLE DRUG OVERDOSE INTENTIONAL [None]
  - SUICIDE ATTEMPT [None]
